FAERS Safety Report 4651684-4 (Version None)
Quarter: 2005Q2

REPORT INFORMATION
  Report Type: 
  Country: None (occurrence: None)
  Receive Date: 20050502
  Receipt Date: 20050418
  Transmission Date: 20051028
  Serious: Yes (Other)
  Sender: FDA-Public Use
  Company Number: 2004234621US

PATIENT
  Sex: Female
  Weight: 63.5036 kg

DRUGS (18)
  1. CELEBREX [Suspect]
     Indication: ARTHRITIS
     Dosage: 400 MG (200 MG, 2 IN 1 D), ORAL
     Route: 048
  2. ALL OTHER THERAPEUTIC PRODUCTS (ALL OTHER THERAPEUTIC PRODUCTS) [Suspect]
     Indication: ILL-DEFINED DISORDER
  3. GLIPIZIDE [Concomitant]
  4. ASPIRIN [Concomitant]
  5. LOVASTATIN [Concomitant]
  6. POTASSIUM CHLORIDE [Concomitant]
  7. TRIAMTERENE (TRIAMTERENE) [Concomitant]
  8. ATENOLOLL (ATENOLOL) [Concomitant]
  9. AMLODIPINE BESYLATE [Concomitant]
  10. MULTIVITAMINS (ASCORBIC ACID, ERGOCALCIFEROL, FOLIC ACID, NICOTINAMIDE [Concomitant]
  11. GINKGO BILOBA (GINKGO BILOBA) [Concomitant]
  12. FLUTICASONE PROPIONATE [Concomitant]
  13. CALCIUM CARBONATE (CALCIUM CARBONATE) [Concomitant]
  14. DOCUSATE SODIUM (DOCUSATE SODIUM) [Concomitant]
  15. ALL OTHER THERAPEUTIC PRODUCTS (ALL OTHER THERAPEUTIC PRODUCTS) [Concomitant]
  16. BELLASPON RETARD (BELLADONNA ALKALOIDS, ERGOTAMINE TARTRATE, PHENOBARB [Concomitant]
  17. TOCOPHEROL (TOCOPHEROL) [Concomitant]
  18. LANSOPRAZOLE [Concomitant]

REACTIONS (5)
  - AMNESIA [None]
  - CARDIAC DISORDER [None]
  - DIABETES MELLITUS [None]
  - RENAL DISORDER [None]
  - VASCULAR BYPASS GRAFT [None]
